FAERS Safety Report 8688989 (Version 2)
Quarter: 2012Q4

REPORT INFORMATION
  Report Type: 
  Country: US (occurrence: US)
  Receive Date: 20120727
  Receipt Date: 20121023
  Transmission Date: 20130627
  Serious: No
  Sender: FDA-Public Use
  Company Number: US-ASTRAZENECA-2011SE72813

PATIENT
  Age: 56 Year
  Sex: Male

DRUGS (2)
  1. SEROQUEL XR [Suspect]
     Route: 048
  2. COLOZAPAM [Concomitant]

REACTIONS (7)
  - Depression [Unknown]
  - Disorientation [Unknown]
  - Chronic obstructive pulmonary disease [Unknown]
  - Insomnia [Unknown]
  - Memory impairment [Unknown]
  - Drug dose omission [Unknown]
  - Off label use [Unknown]
